FAERS Safety Report 9536633 (Version 1)
Quarter: 2013Q2

REPORT INFORMATION
  Report Type: Spontaneous
  Country: US (occurrence: None)
  Receive Date: 20130517
  Receipt Date: 20130517
  Transmission Date: 20140414
  Serious: Yes (Other)
  Sender: FDA-Public Use
  Company Number: 1000044375

PATIENT
  Age: 53 Year
  Sex: Female

DRUGS (1)
  1. VIIBRYD [Suspect]
     Indication: DEPRESSION
     Dosage: 10 MG (10 MG, 1 IN 1 D), ORAL
     Route: 048
     Dates: start: 201303, end: 201304

REACTIONS (5)
  - Bronchitis [None]
  - Nausea [None]
  - Diarrhoea [None]
  - Frequent bowel movements [None]
  - Insomnia [None]
